FAERS Safety Report 16869086 (Version 1)
Quarter: 2019Q3

REPORT INFORMATION
  Report Type: Spontaneous
  Country: CA (occurrence: CA)
  Receive Date: 20190930
  Receipt Date: 20190930
  Transmission Date: 20191005
  Serious: Yes (Hospitalization)
  Sender: FDA-Public Use
  Company Number: CA-PFIZER INC-2019418519

PATIENT
  Age: 30 Year
  Sex: Female
  Weight: 54 kg

DRUGS (3)
  1. REMICADE [Suspect]
     Active Substance: INFLIXIMAB
     Indication: CROHN^S DISEASE
     Dosage: 300 MG, (1 EVERY 7 WEEK(S))
     Route: 042
  2. REMICADE [Suspect]
     Active Substance: INFLIXIMAB
     Dosage: 300 MG, (1 EVERY 7 WEEK(S))
     Route: 042
  3. METRONIDAZOLE. [Suspect]
     Active Substance: METRONIDAZOLE
     Dosage: UNK
     Route: 065

REACTIONS (4)
  - Pancreatitis [Recovered/Resolved]
  - Ovarian cyst [Recovered/Resolved]
  - Contrast media reaction [Recovered/Resolved]
  - Vaginal haemorrhage [Recovered/Resolved]
